FAERS Safety Report 5883647-5 (Version None)
Quarter: 2008Q3

REPORT INFORMATION
  Report Type: 
  Country: None (occurrence: None)
  Receive Date: 20080915
  Receipt Date: 20080904
  Transmission Date: 20090109
  Serious: Yes (Death, Other)
  Sender: FDA-Public Use
  Company Number: US-BAYER-200811404NA

PATIENT
  Age: 48 Year
  Sex: Female

DRUGS (3)
  1. NEXAVAR [Suspect]
     Indication: RENAL CELL CARCINOMA
     Dosage: TOTAL DAILY DOSE: 800 MG  UNIT DOSE: 200 MG
     Route: 048
     Dates: start: 20080108
  2. FENTANYL TRANSDERMAL SYSTEM [Concomitant]
     Indication: BACK PAIN
     Dates: start: 20080108
  3. REGLAN [Concomitant]

REACTIONS (7)
  - DIZZINESS [None]
  - DYSPHAGIA [None]
  - DYSPHONIA [None]
  - HALLUCINATION [None]
  - RENAL CANCER [None]
  - SEDATION [None]
  - VISION BLURRED [None]
